FAERS Safety Report 6037586-X (Version None)
Quarter: 2009Q1

REPORT INFORMATION
  Report Type: 
  Country: None (occurrence: None)
  Receive Date: 20090113
  Receipt Date: 20090105
  Transmission Date: 20090719
  Serious: Yes (Other)
  Sender: FDA-Public Use
  Company Number: PHEH2008US11392

PATIENT
  Age: 83 Year
  Sex: Male

DRUGS (1)
  1. VISUDYNE [Suspect]
     Dates: start: 20081218, end: 20081218

REACTIONS (2)
  - RETINAL INJURY [None]
  - RETINAL ISCHAEMIA [None]
